FAERS Safety Report 26158443 (Version 1)
Quarter: 2025Q4

REPORT INFORMATION
  Report Type: Spontaneous
  Country: RU (occurrence: RU)
  Receive Date: 20251215
  Receipt Date: 20251215
  Transmission Date: 20260118
  Serious: Yes (Disabling, Other)
  Sender: ELI LILLY AND COMPANY
  Company Number: RU-ELI_LILLY_AND_COMPANY-RU202512015757

PATIENT
  Age: 78 Year
  Sex: Female
  Weight: 51 kg

DRUGS (1)
  1. TERIPARATIDE [Suspect]
     Active Substance: TERIPARATIDE
     Indication: Spinal fracture
     Dosage: 1 DOSAGE FORM, DAILY
     Route: 058
     Dates: start: 20200601, end: 20221001

REACTIONS (4)
  - Arteriosclerosis [Not Recovered/Not Resolved]
  - Amnesia [Unknown]
  - Dizziness [Unknown]
  - Off label use [Unknown]

NARRATIVE: CASE EVENT DATE: 20221201
